FAERS Safety Report 9155618 (Version 3)
Quarter: 2014Q3

REPORT INFORMATION
  Report Type: Report from Study
  Country: MX (occurrence: MX)
  Receive Date: 20130311
  Receipt Date: 20140725
  Transmission Date: 20150326
  Serious: Yes (Hospitalization, Disabling)
  Sender: FDA-Public Use
  Company Number: PHHY2013MX023302

PATIENT
  Age: 74 Year
  Sex: Female

DRUGS (6)
  1. ASPIRIN PROTEC [Concomitant]
     Dosage: UNK UKN, UNK
  2. DIOVAN [Suspect]
     Active Substance: VALSARTAN
     Dosage: 2 DF (320 MG), DAILY
     Route: 048
  3. INSULIN [Concomitant]
     Active Substance: INSULIN NOS
     Dosage: UNK UKN, UNK
  4. SPIRONOLACTONE. [Concomitant]
     Active Substance: SPIRONOLACTONE
     Dosage: UNK UKN, UNK
  5. DIOVAN [Suspect]
     Active Substance: VALSARTAN
     Indication: HYPERTENSION
     Dosage: 1 OR 2 DF (80 MG) DEPENDING ON THE BP DAILY
     Route: 048
     Dates: start: 20121009
  6. DIOVAN [Suspect]
     Active Substance: VALSARTAN
     Dosage: 1 DF (UKN), DAILY

REACTIONS (2)
  - Accident [Recovered/Resolved]
  - Femur fracture [Recovered/Resolved]

NARRATIVE: CASE EVENT DATE: 201301
